FAERS Safety Report 10552038 (Version 1)
Quarter: 2014Q4

REPORT INFORMATION
  Report Type: Spontaneous
  Country: US (occurrence: US)
  Receive Date: 20141029
  Receipt Date: 20141029
  Transmission Date: 20150529
  Serious: No
  Sender: FDA-Public Use
  Company Number: US-BAYER-2014-158031

PATIENT
  Age: 39 Year
  Sex: Male

DRUGS (3)
  1. MAGNEVIST [Suspect]
     Active Substance: GADOPENTETATE DIMEGLUMINE
     Indication: DYSPNOEA
  2. MAGNEVIST [Suspect]
     Active Substance: GADOPENTETATE DIMEGLUMINE
     Indication: CARDIAC IMAGING PROCEDURE
     Dosage: 18 CC, ONCE
     Dates: start: 20141016, end: 20141016
  3. MAGNEVIST [Suspect]
     Active Substance: GADOPENTETATE DIMEGLUMINE
     Indication: FLUID RETENTION

REACTIONS (9)
  - Muscular weakness [Not Recovered/Not Resolved]
  - Limb discomfort [Not Recovered/Not Resolved]
  - Peripheral swelling [Not Recovered/Not Resolved]
  - Limb discomfort [Not Recovered/Not Resolved]
  - Dizziness [Recovered/Resolved]
  - Myalgia [Not Recovered/Not Resolved]
  - Extra dose administered [None]
  - Muscle fatigue [Not Recovered/Not Resolved]
  - Pain in extremity [Not Recovered/Not Resolved]

NARRATIVE: CASE EVENT DATE: 20141016
